FAERS Safety Report 20556873 (Version 9)
Quarter: 2024Q1

REPORT INFORMATION
  Report Type: Spontaneous
  Country: US (occurrence: US)
  Receive Date: 20220307
  Receipt Date: 20240209
  Transmission Date: 20240410
  Serious: Yes (Hospitalization, Disabling, Other)
  Sender: FDA-Public Use
  Company Number: US-ORGANON-O2203USA000249

PATIENT
  Sex: Female

DRUGS (7)
  1. SINGULAIR [Suspect]
     Active Substance: MONTELUKAST SODIUM
     Indication: Asthma
     Dosage: 1 TAB(S), 1XDAILY HS
     Route: 048
     Dates: start: 199901, end: 2012
  2. SINGULAIR [Suspect]
     Active Substance: MONTELUKAST SODIUM
     Indication: Rhinitis allergic
     Dosage: 1 TAB(S), PO, 1XDAILY HS
     Route: 048
  3. ADVAIR HFA [Concomitant]
     Active Substance: FLUTICASONE PROPIONATE\SALMETEROL XINAFOATE
     Indication: Asthma
     Dosage: 2 PUFFS INHALATION TWICE A DAY
  4. ADVAIR HFA [Concomitant]
     Active Substance: FLUTICASONE PROPIONATE\SALMETEROL XINAFOATE
     Indication: Hypersensitivity
  5. ALBUTEROL SULFATE [Concomitant]
     Active Substance: ALBUTEROL SULFATE
     Indication: Asthma
     Dosage: AS NEEDED
  6. ALBUTEROL SULFATE [Concomitant]
     Active Substance: ALBUTEROL SULFATE
     Indication: Hypersensitivity
  7. ALBUTEROL SULFATE [Concomitant]
     Active Substance: ALBUTEROL SULFATE
     Dosage: 2 PUFF AS NEEDED INHALATION EVERY 4 HOURS

REACTIONS (38)
  - Neuropsychological symptoms [Not Recovered/Not Resolved]
  - Neurogenic bladder [Recovering/Resolving]
  - Neurogenic bowel [Not Recovered/Not Resolved]
  - Myelopathy [Not Recovered/Not Resolved]
  - Major depression [Recovered/Resolved]
  - Suicide attempt [Unknown]
  - Neuropathy peripheral [Recovering/Resolving]
  - Anxiety [Recovered/Resolved]
  - Suicidal ideation [Recovered/Resolved]
  - Suicide attempt [Unknown]
  - Radiculopathy [Not Recovered/Not Resolved]
  - Chronic kidney disease [Not Recovered/Not Resolved]
  - Urinary retention [Unknown]
  - Paraparesis [Not Recovered/Not Resolved]
  - Major depression [Not Recovered/Not Resolved]
  - Intentional overdose [Unknown]
  - Migraine [Recovering/Resolving]
  - Back pain [Recovering/Resolving]
  - Sinusitis [Recovering/Resolving]
  - Abdominal pain upper [Unknown]
  - Headache [Unknown]
  - Dyspepsia [Unknown]
  - Intentional overdose [Unknown]
  - Oropharyngeal pain [Not Recovered/Not Resolved]
  - Dysphonia [Not Recovered/Not Resolved]
  - Gastrooesophageal reflux disease [Not Recovered/Not Resolved]
  - Generalised anxiety disorder [Not Recovered/Not Resolved]
  - Insomnia [Not Recovered/Not Resolved]
  - Functional gastrointestinal disorder [Unknown]
  - Spinal osteoarthritis [Unknown]
  - Lumbar radiculopathy [Recovering/Resolving]
  - Cervical radiculopathy [Unknown]
  - Osteoarthritis [Unknown]
  - Gait disturbance [Unknown]
  - Asthma-chronic obstructive pulmonary disease overlap syndrome [Not Recovered/Not Resolved]
  - Bronchitis chronic [Unknown]
  - Laryngitis [Unknown]
  - Sleep disorder [Not Recovered/Not Resolved]

NARRATIVE: CASE EVENT DATE: 19990101
